FAERS Safety Report 5868848-4 (Version None)
Quarter: 2008Q3

REPORT INFORMATION
  Report Type: 
  Country: None (occurrence: None)
  Receive Date: 20080902
  Receipt Date: 20080902
  Transmission Date: 20090109
  Serious: Yes (Other)
  Sender: FDA-Public Use
  Company Number: None

PATIENT
  Sex: Female
  Weight: 70.4 kg

DRUGS (18)
  1. VFEND [Suspect]
     Dosage: 200 MG TWICE DAILY PO
     Route: 048
     Dates: start: 20080813, end: 20080828
  2. TACROLIMUS [Concomitant]
  3. MEDROL [Concomitant]
  4. ACYCLOVIR [Concomitant]
  5. PENTAMIDINE [Concomitant]
  6. PENICILLIN V POTASSIUM [Concomitant]
  7. ADVAIR DISKUS 100/50 [Concomitant]
  8. MAGNESIUM OXIDE [Concomitant]
  9. ASCORBIC ACID [Concomitant]
  10. CALCIUM + D [Concomitant]
  11. ACTONEL [Concomitant]
  12. SYNTHROID [Concomitant]
  13. ATIVAN [Concomitant]
  14. NASONEX [Concomitant]
  15. LACRILUBE [Concomitant]
  16. THERA TEARS [Concomitant]
  17. PRILOSEC [Concomitant]
  18. SENNA [Concomitant]

REACTIONS (5)
  - BLEPHARITIS [None]
  - CHAPPED LIPS [None]
  - CONJUNCTIVAL HYPERAEMIA [None]
  - EYELID MARGIN CRUSTING [None]
  - STEVENS-JOHNSON SYNDROME [None]
